FAERS Safety Report 7721718-9 (Version None)
Quarter: 2011Q3

REPORT INFORMATION
  Report Type: 
  Country: None (occurrence: None)
  Receive Date: 20110831
  Receipt Date: 20110826
  Transmission Date: 20111222
  Serious: Yes (Life-Threatening, Hospitalization)
  Sender: FDA-Public Use
  Company Number: GB-GLAXOSMITHKLINE-B0742538A

PATIENT
  Age: 61 Year
  Sex: Female

DRUGS (9)
  1. VOTRIENT [Suspect]
     Indication: RENAL CELL CARCINOMA
     Route: 048
     Dates: start: 20110808, end: 20110812
  2. ACETAMINOPHEN AND CODEINE PHOSPHATE [Concomitant]
  3. HYDROCHLOROTHIAZIDE [Concomitant]
  4. OMEPRAZOLE [Concomitant]
  5. ATORVASTATIN [Concomitant]
  6. TENORMIN [Concomitant]
  7. IRBESARTAN [Concomitant]
  8. SOLIFENACIN SUCCINATE [Concomitant]
  9. ASPIRIN [Concomitant]

REACTIONS (2)
  - CONVULSION [None]
  - HYPONATRAEMIA [None]
